FAERS Safety Report 7611667-9 (Version None)
Quarter: 2011Q3

REPORT INFORMATION
  Report Type: 
  Country: None (occurrence: None)
  Receive Date: 20110715
  Receipt Date: 20110711
  Transmission Date: 20111222
  Serious: Yes (Hospitalization)
  Sender: FDA-Public Use
  Company Number: US-CUBIST-2011S1000321

PATIENT
  Age: 18 Year
  Sex: Female
  Weight: 52 kg

DRUGS (1)
  1. VANCOMYCIN [Suspect]
     Indication: ABSCESS
     Route: 042
     Dates: start: 20110430, end: 20110501

REACTIONS (2)
  - WHITE BLOOD CELL COUNT INCREASED [None]
  - BLOOD CREATININE INCREASED [None]
